FAERS Safety Report 20328803 (Version 1)
Quarter: 2022Q1

REPORT INFORMATION
  Report Type: Spontaneous
  Country: RU (occurrence: None)
  Receive Date: 20220112
  Receipt Date: 20220112
  Transmission Date: 20220423
  Serious: Yes (Other)
  Sender: FDA-Public Use
  Company Number: RU-Merck Healthcare KGaA-9264407

PATIENT
  Age: 57 Year
  Sex: Female

DRUGS (5)
  1. EUTHYROX [Suspect]
     Active Substance: LEVOTHYROXINE SODIUM
     Indication: Autoimmune thyroiditis
     Route: 048
     Dates: start: 2008, end: 2021
  2. EUTHYROX [Suspect]
     Active Substance: LEVOTHYROXINE SODIUM
     Route: 048
     Dates: start: 2021, end: 2021
  3. EUTHYROX [Suspect]
     Active Substance: LEVOTHYROXINE SODIUM
     Route: 048
     Dates: start: 2021, end: 2021
  4. EUTHYROX [Suspect]
     Active Substance: LEVOTHYROXINE SODIUM
     Route: 048
     Dates: start: 2021, end: 2021
  5. EUTHYROX [Suspect]
     Active Substance: LEVOTHYROXINE SODIUM
     Dosage: DRUG RESTARTED
     Route: 048
     Dates: start: 2021

REACTIONS (9)
  - Asphyxia [Recovered/Resolved]
  - Choking [Recovered/Resolved]
  - General physical health deterioration [Recovered/Resolved]
  - Dry skin [Recovered/Resolved]
  - Anti-thyroid antibody positive [Unknown]
  - Mucosal dryness [Recovered/Resolved]
  - Tachycardia [Unknown]
  - Drug ineffective [Recovered/Resolved]
  - Expired product administered [Unknown]

NARRATIVE: CASE EVENT DATE: 20200101
